FAERS Safety Report 9686157 (Version 1)
Quarter: 2013Q4

REPORT INFORMATION
  Report Type: Spontaneous
  Country: IT (occurrence: IT)
  Receive Date: 20131113
  Receipt Date: 20131113
  Transmission Date: 20140711
  Serious: Yes (Hospitalization)
  Sender: FDA-Public Use
  Company Number: IT-WATSON-2013-20356

PATIENT
  Age: 3 Year
  Sex: Female
  Weight: 22 kg

DRUGS (4)
  1. MICROPAM [Suspect]
     Indication: GRAND MAL CONVULSION
     Dosage: 1 DF; PRN
     Route: 054
     Dates: start: 20130307, end: 20130307
  2. IPNOVEL /00634101/ [Suspect]
     Indication: GRAND MAL CONVULSION
     Dosage: 3 MG, SINGLE
     Route: 042
     Dates: start: 20130307, end: 20130307
  3. PENTOTHAL SODIUM [Suspect]
     Indication: GRAND MAL CONVULSION
     Dosage: 100 MG, SINGLE
     Route: 042
     Dates: start: 20130307, end: 20130307
  4. DEPAKIN [Concomitant]
     Indication: GRAND MAL CONVULSION
     Dosage: 100 MG; UNKNOWN
     Route: 048
     Dates: start: 20130316, end: 20130321

REACTIONS (3)
  - Respiratory depression [Recovered/Resolved]
  - Mydriasis [Recovered/Resolved]
  - Rash maculo-papular [Recovered/Resolved]
